FAERS Safety Report 7912004-2 (Version None)
Quarter: 2011Q4

REPORT INFORMATION
  Report Type: 
  Country: None (occurrence: None)
  Receive Date: 20111114
  Receipt Date: 20111108
  Transmission Date: 20120403
  Serious: Yes (Death)
  Sender: FDA-Public Use
  Company Number: US-GILEAD-2011-0045935

PATIENT
  Sex: Male

DRUGS (4)
  1. LETAIRIS [Suspect]
     Indication: DRUG ABUSE
  2. LETAIRIS [Suspect]
     Indication: HIV TEST POSITIVE
  3. LETAIRIS [Suspect]
     Indication: PULMONARY HYPERTENSION
     Dosage: 10 MG, UNK
     Route: 048
     Dates: start: 20110825, end: 20111024
  4. LETAIRIS [Suspect]
     Indication: SLEEP APNOEA SYNDROME

REACTIONS (2)
  - DISEASE COMPLICATION [None]
  - PULMONARY ARTERIAL HYPERTENSION [None]
